FAERS Safety Report 17145263 (Version 1)
Quarter: 2019Q4

REPORT INFORMATION
  Report Type: Spontaneous
  Country: US (occurrence: US)
  Receive Date: 20191211
  Receipt Date: 20191211
  Transmission Date: 20200122
  Serious: Yes (Life-Threatening, Disabling, Other)
  Sender: FDA-Public Use
  Company Number: None

PATIENT
  Age: 33 Year
  Sex: Male
  Weight: 83.25 kg

DRUGS (9)
  1. LEVOTHYROXINE. [Concomitant]
     Active Substance: LEVOTHYROXINE
  2. OMEPRAZOLE. [Concomitant]
     Active Substance: OMEPRAZOLE
  3. LIOTHYRONINE SODIUM TABLET [Suspect]
     Active Substance: LIOTHYRONINE SODIUM
     Indication: AUTOIMMUNE THYROIDITIS
     Dosage: ?          QUANTITY:90 TABLET(S);?
     Route: 048
     Dates: start: 20191209, end: 20191210
  4. VITAMIN D [Concomitant]
     Active Substance: VITAMIN D NOS
  5. SIMVASTATIN. [Concomitant]
     Active Substance: SIMVASTATIN
  6. PROPRANOLOL [Concomitant]
     Active Substance: PROPRANOLOL HYDROCHLORIDE
  7. CYTOMEL (STOPPED) [Concomitant]
  8. ADDERRALL (STOPPED) [Concomitant]
  9. ATIVAN (STOPPED) [Concomitant]

REACTIONS (5)
  - Blindness [None]
  - Tremor [None]
  - Myalgia [None]
  - Fatigue [None]
  - Hypoaesthesia [None]

NARRATIVE: CASE EVENT DATE: 20191209
